FAERS Safety Report 19481993 (Version 1)
Quarter: 2021Q2

REPORT INFORMATION
  Report Type: Spontaneous
  Country: US (occurrence: US)
  Receive Date: 20210630
  Receipt Date: 20210630
  Transmission Date: 20210717
  Serious: Yes (Other)
  Sender: FDA-Public Use
  Company Number: None

PATIENT
  Age: 48 Year
  Sex: Female

DRUGS (24)
  1. TREPROSTINIL. [Concomitant]
     Active Substance: TREPROSTINIL
  2. LOPERAMIDE [Concomitant]
     Active Substance: LOPERAMIDE
  3. MUPIROCIN TOP OINT [Concomitant]
  4. SPIRONOLACTONE. [Concomitant]
     Active Substance: SPIRONOLACTONE
  5. ARIPIPRAZOLE. [Concomitant]
     Active Substance: ARIPIPRAZOLE
  6. PANTOPRAZOLE [Concomitant]
     Active Substance: PANTOPRAZOLE
  7. GABAPENTIN. [Concomitant]
     Active Substance: GABAPENTIN
  8. DICLOFENAC TOP GEL [Concomitant]
  9. NICODERM CQ [Concomitant]
     Active Substance: NICOTINE
  10. TYLENOL [Concomitant]
     Active Substance: ACETAMINOPHEN
  11. SILDENAFIL. [Concomitant]
     Active Substance: SILDENAFIL
  12. ESCITALOPRAM [Concomitant]
     Active Substance: ESCITALOPRAM OXALATE
  13. SELENIUM TOP LOTION [Concomitant]
  14. NORCO [Concomitant]
     Active Substance: ACETAMINOPHEN\HYDROCODONE BITARTRATE
  15. SIMVASTATIN. [Concomitant]
     Active Substance: SIMVASTATIN
  16. BUMETANIDE. [Concomitant]
     Active Substance: BUMETANIDE
  17. OPSUMIT [Suspect]
     Active Substance: MACITENTAN
     Indication: PULMONARY HYPERTENSION
     Route: 048
     Dates: start: 20191206
  18. CYCLOBENZAPRINE. [Concomitant]
     Active Substance: CYCLOBENZAPRINE
  19. POTASSIUM CHLORIDE. [Concomitant]
     Active Substance: POTASSIUM CHLORIDE
  20. LAMOTRIGIE [Concomitant]
  21. MONTELUKAST [Concomitant]
     Active Substance: MONTELUKAST SODIUM
  22. QUETIAPINE. [Concomitant]
     Active Substance: QUETIAPINE
  23. WIXELA INHUB [Concomitant]
     Active Substance: FLUTICASONE PROPIONATE\SALMETEROL XINAFOATE
  24. ZOFRAN [Concomitant]
     Active Substance: ONDANSETRON HYDROCHLORIDE

REACTIONS (3)
  - Abscess drainage [None]
  - Skin laceration [None]
  - Folliculitis [None]

NARRATIVE: CASE EVENT DATE: 20210604
